FAERS Safety Report 17787201 (Version 2)
Quarter: 2020Q2

REPORT INFORMATION
  Report Type: Spontaneous
  Country: US (occurrence: US)
  Receive Date: 20200514
  Receipt Date: 20200519
  Transmission Date: 20200714
  Serious: No
  Sender: FDA-Public Use
  Company Number: NVSC2020US128716

PATIENT
  Sex: Female

DRUGS (1)
  1. MEKINIST [Suspect]
     Active Substance: TRAMETINIB DIMETHYL SULFOXIDE
     Indication: TUBEROUS SCLEROSIS COMPLEX
     Dosage: 1 MG, QD
     Route: 048
     Dates: start: 20200127

REACTIONS (2)
  - Alopecia [Unknown]
  - Product use in unapproved indication [Unknown]
